FAERS Safety Report 25900638 (Version 1)
Quarter: 2025Q4

REPORT INFORMATION
  Report Type: Spontaneous
  Country: CN (occurrence: CN)
  Receive Date: 20251009
  Receipt Date: 20251009
  Transmission Date: 20260118
  Serious: Yes (Hospitalization, Other)
  Sender: BAYER HEALTHCARE PHARMACEUTICALS INC.
  Company Number: CN-BAYER-2025A133070

PATIENT
  Age: 72 Year
  Sex: Female
  Weight: 64 kg

DRUGS (1)
  1. KERENDIA [Suspect]
     Active Substance: FINERENONE
     Indication: Diabetic nephropathy
     Dosage: 10 MG, QD
     Route: 048
     Dates: start: 20250311, end: 20250913

REACTIONS (2)
  - Hyperkalaemia [Recovered/Resolved]
  - Blood creatinine increased [Recovering/Resolving]

NARRATIVE: CASE EVENT DATE: 20250913
